FAERS Safety Report 17781486 (Version 1)
Quarter: 2020Q2

REPORT INFORMATION
  Report Type: Spontaneous
  Country: US (occurrence: US)
  Receive Date: 20200514
  Receipt Date: 20200514
  Transmission Date: 20200714
  Serious: No
  Sender: FDA-Public Use
  Company Number: US-BION-008503

PATIENT

DRUGS (1)
  1. BIONPHARMA^S IBUPROFEN SOFTGELS 200 MG [Suspect]
     Active Substance: IBUPROFEN
     Indication: PRODUCT USED FOR UNKNOWN INDICATION
     Dosage: STRENGTH 200 MG

REACTIONS (1)
  - Product odour abnormal [Unknown]
